FAERS Safety Report 9528452 (Version 2)
Quarter: 2013Q3

REPORT INFORMATION
  Report Type: Spontaneous
  Country: PT (occurrence: PT)
  Receive Date: 20130917
  Receipt Date: 20130917
  Transmission Date: 20140515
  Serious: Yes (Other)
  Sender: FDA-Public Use
  Company Number: PT-SANOFI-AVENTIS-2012SA033089

PATIENT
  Age: 62 Year
  Sex: Male

DRUGS (7)
  1. JEVTANA [Suspect]
     Indication: PROSTATE CANCER METASTATIC
     Dosage: A TOTAL OF 47.5 MG I.V
     Route: 042
     Dates: start: 20120324
  2. JEVTANA [Suspect]
     Indication: PROSTATE CANCER METASTATIC
     Route: 042
     Dates: end: 201209
  3. PREDNISOLONE [Concomitant]
     Route: 048
     Dates: start: 20120324
  4. ZOLEDRONIC ACID [Concomitant]
     Route: 042
  5. ANTIHISTAMINES [Concomitant]
  6. DEXAMETHASONE [Concomitant]
  7. RANITIDINE [Concomitant]

REACTIONS (8)
  - Neutropenia [Recovered/Resolved]
  - Asthenia [Recovered/Resolved]
  - Dysgeusia [Recovered/Resolved]
  - Hypokalaemia [Recovered/Resolved]
  - Haematotoxicity [Not Recovered/Not Resolved]
  - Weight decreased [Recovered/Resolved]
  - Balance disorder [Recovered/Resolved]
  - Decreased appetite [Recovered/Resolved]
